FAERS Safety Report 10612770 (Version 1)
Quarter: 2014Q4

REPORT INFORMATION
  Report Type: Not Available
  Country: FR (occurrence: FR)
  Receive Date: 20141127
  Receipt Date: 20141127
  Transmission Date: 20150529
  Serious: Yes (Other)
  Sender: FDA-Public Use
  Company Number: FR-BEH-2014046654

PATIENT
  Age: 73 Year
  Sex: Female

DRUGS (2)
  1. CONFIDEX [Suspect]
     Active Substance: COAGULATION FACTOR IX HUMAN\COAGULATION FACTOR VII HUMAN\COAGULATION FACTOR X HUMAN\PROTEIN C\PROTEIN S HUMAN\PROTHROMBIN
     Indication: ACCIDENTAL OVERDOSE
     Dosage: DOSE: 4 DF (4 VIALS OF 250 IU) IN ONE SINGLE SHOT
     Route: 042
     Dates: start: 20141017
  2. VITAMIN K [Concomitant]
     Active Substance: PHYTONADIONE
     Dates: start: 20141017

REACTIONS (5)
  - Disorientation [Recovering/Resolving]
  - Monoparesis [Recovering/Resolving]
  - Somnolence [Recovering/Resolving]
  - Neurological decompensation [Recovering/Resolving]
  - Ischaemic stroke [Recovering/Resolving]

NARRATIVE: CASE EVENT DATE: 20141026
